FAERS Safety Report 8430021-3 (Version None)
Quarter: 2012Q2

REPORT INFORMATION
  Report Type: 
  Country: None (occurrence: None)
  Receive Date: 20120612
  Receipt Date: 20120607
  Transmission Date: 20120825
  Serious: No
  Sender: FDA-Public Use
  Company Number: US-JNJFOC-20120516054

PATIENT
  Sex: Male

DRUGS (5)
  1. FENTANYL-100 [Suspect]
     Indication: PRODUCT USED FOR UNKNOWN INDICATION
     Route: 062
  2. DURAGESIC-100 [Suspect]
     Indication: PRODUCT USED FOR UNKNOWN INDICATION
     Route: 062
     Dates: start: 20050101
  3. DURAGESIC-100 [Suspect]
     Dosage: 100 AND 50 UG/HR PATCH
     Route: 062
  4. DURAGESIC-100 [Suspect]
     Route: 062
  5. PERCOCET [Concomitant]
     Indication: PAIN
     Route: 065

REACTIONS (3)
  - PRODUCT QUALITY ISSUE [None]
  - WRONG TECHNIQUE IN DRUG USAGE PROCESS [None]
  - PAIN [None]
